FAERS Safety Report 9137355 (Version 1)
Quarter: 2013Q1

REPORT INFORMATION
  Report Type: Spontaneous
  Country: US (occurrence: US)
  Receive Date: 20130304
  Receipt Date: 20130304
  Transmission Date: 20140127
  Serious: No
  Sender: FDA-Public Use
  Company Number: US-BAYER-2013-026995

PATIENT
  Age: 18 Year
  Sex: Male
  Weight: 70.3 kg

DRUGS (1)
  1. ALEVE CAPLET/TABLET,MIDOL EXTENDED RELIEF CAPLET [Suspect]
     Indication: SINUS HEADACHE
     Dosage: 4 DF, UNK
     Route: 048
     Dates: start: 20130221

REACTIONS (2)
  - Overdose [None]
  - Abdominal pain [Not Recovered/Not Resolved]
